FAERS Safety Report 5055995-2 (Version None)
Quarter: 2006Q3

REPORT INFORMATION
  Report Type: 
  Country: None (occurrence: None)
  Receive Date: 20060720
  Receipt Date: 20060711
  Transmission Date: 20061208
  Serious: Yes (Other)
  Sender: FDA-Public Use
  Company Number: PHBS2006BR10475

PATIENT
  Age: 31 Year
  Sex: Female
  Weight: 60 kg

DRUGS (1)
  1. PARLODEL [Suspect]
     Indication: BLOOD PROLACTIN ABNORMAL
     Dosage: 2.5 MG, QD
     Route: 048
     Dates: start: 20060708, end: 20060708

REACTIONS (2)
  - EPILEPSY [None]
  - SYNCOPE [None]
